FAERS Safety Report 5988726-X (Version None)
Quarter: 2008Q4

REPORT INFORMATION
  Report Type: 
  Country: None (occurrence: None)
  Receive Date: 20081208
  Receipt Date: 20081208
  Transmission Date: 20090506
  Serious: Yes (Hospitalization)
  Sender: FDA-Public Use
  Company Number: None

PATIENT
  Sex: Male
  Weight: 87 kg

DRUGS (2)
  1. CISPLATIN [Suspect]
     Dosage: 150 MG
     Dates: end: 20081117
  2. TAXOL [Suspect]
     Dosage: 104 MG
     Dates: end: 20081117

REACTIONS (1)
  - CARDIAC FAILURE [None]
